FAERS Safety Report 5193214-7 (Version None)
Quarter: 2006Q4

REPORT INFORMATION
  Report Type: 
  Country: None (occurrence: None)
  Receive Date: 20061228
  Receipt Date: 20060707
  Transmission Date: 20070319
  Serious: No
  Sender: FDA-Public Use
  Company Number: US-GLAXOSMITHKLINE-A0611457A

PATIENT
  Age: 70 Year
  Sex: Male
  Weight: 64.5 kg

DRUGS (11)
  1. AVODART [Suspect]
     Indication: BENIGN PROSTATIC HYPERPLASIA
     Dosage: .5MG PER DAY
     Route: 048
  2. METFORMIN HCL [Concomitant]
     Dosage: 750MG PER DAY
     Route: 048
     Dates: start: 20060622
  3. COREG [Concomitant]
     Dosage: 12.5MG PER DAY
     Route: 048
     Dates: start: 20060306
  4. LIPITOR [Concomitant]
     Dosage: 10MG PER DAY
     Route: 048
     Dates: start: 20000101, end: 20060717
  5. FLOMAX [Concomitant]
     Dosage: 100MG PER DAY
     Route: 048
     Dates: start: 20030101
  6. ASCORBIC ACID [Concomitant]
     Dosage: 400MEQ PER DAY
  7. MULTI-VITAMIN [Concomitant]
     Dosage: 1TAB PER DAY
  8. ASPIRIN [Concomitant]
     Dosage: 325MG PER DAY
  9. DIGOXIN [Concomitant]
     Dosage: .25MG PER DAY
  10. LEVOXYL [Concomitant]
     Dosage: 50MCG PER DAY
  11. COZAAR [Concomitant]
     Dosage: 25MG TWICE PER DAY

REACTIONS (2)
  - MUSCULAR WEAKNESS [None]
  - SENSATION OF HEAVINESS [None]
